FAERS Safety Report 4851012-5 (Version None)
Quarter: 2005Q4

REPORT INFORMATION
  Report Type: 
  Country: None (occurrence: None)
  Receive Date: 20051212
  Receipt Date: 20051028
  Transmission Date: 20060501
  Serious: Yes (Other)
  Sender: FDA-Public Use
  Company Number: PHBS2005JP16068

PATIENT
  Age: 20 Year
  Sex: Female

DRUGS (3)
  1. PARLODEL [Suspect]
     Indication: HYPERPROLACTINAEMIA
     Dosage: 2.5 MG/DAY
     Route: 048
     Dates: start: 20051005, end: 20051005
  2. SHAKUYAKUKANZOUTOU [Concomitant]
     Dosage: 5 G, UNK
     Route: 048
     Dates: start: 20051005, end: 20051005
  3. UNKEI-TOU [Concomitant]
     Dosage: 5 G, UNK
     Route: 048
     Dates: start: 20051005, end: 20051005

REACTIONS (4)
  - DYSPNOEA [None]
  - LOSS OF CONSCIOUSNESS [None]
  - SOMATOFORM DISORDER [None]
  - VOMITING [None]
